FAERS Safety Report 17916470 (Version 1)
Quarter: 2020Q2

REPORT INFORMATION
  Report Type: Report from Study
  Country: PL (occurrence: PL)
  Receive Date: 20200619
  Receipt Date: 20200619
  Transmission Date: 20200714
  Serious: Yes (Other)
  Sender: FDA-Public Use
  Company Number: PL-PFIZER INC-2020237905

PATIENT

DRUGS (1)
  1. DOXORUBICIN HCL [Suspect]
     Active Substance: DOXORUBICIN HYDROCHLORIDE
     Indication: LUNG NEOPLASM
     Dosage: 0.235 MG/KG, 2X/WEEK (HIGHEST DOSE, AEROSOL WITH PARTICLE SIZE OF 2-3)
     Route: 055

REACTIONS (1)
  - Respiratory failure [Unknown]
